FAERS Safety Report 4307788-9 (Version None)
Quarter: 2004Q1

REPORT INFORMATION
  Report Type: 
  Country: None (occurrence: None)
  Receive Date: 20040225
  Receipt Date: 20030620
  Transmission Date: 20041129
  Serious: Yes (Hospitalization)
  Sender: FDA-Public Use
  Company Number: WAES 0306USA02642

PATIENT
  Age: 56 Year
  Sex: Male

DRUGS (4)
  1. ZOCOR [Suspect]
     Indication: HYPERLIPIDAEMIA
     Dosage: 40 MG/DAILY/PO; 20 MG/DAILY/PO
     Route: 048
     Dates: start: 20020301, end: 20020428
  2. NEORAL [Suspect]
     Dosage: 100 MG/BID
     Dates: start: 20020101, end: 20020502
  3. ACCUPRIL [Concomitant]
  4. LOZOL [Concomitant]

REACTIONS (1)
  - RHABDOMYOLYSIS [None]
